FAERS Safety Report 6782062-X (Version None)
Quarter: 2010Q2

REPORT INFORMATION
  Report Type: 
  Country: None (occurrence: None)
  Receive Date: 20100621
  Receipt Date: 20100608
  Transmission Date: 20101027
  Serious: Yes (Life-Threatening)
  Sender: FDA-Public Use
  Company Number: B0659458A

PATIENT
  Age: 6 Month
  Sex: Female
  Weight: 6 kg

DRUGS (3)
  1. LANVIS [Suspect]
     Indication: CROHN'S DISEASE
     Dosage: 20MG PER DAY
     Dates: start: 20060301
  2. FEROGRADUMET [Concomitant]
     Dosage: 105MG PER DAY
     Route: 065
     Dates: start: 20090101
  3. HYDROCOBAMINE [Concomitant]
     Route: 065
     Dates: start: 20090101

REACTIONS (1)
  - T-CELL LYMPHOMA [None]
